FAERS Safety Report 6130547-1 (Version None)
Quarter: 2009Q1

REPORT INFORMATION
  Report Type: 
  Country: None (occurrence: None)
  Receive Date: 20090323
  Receipt Date: 20090310
  Transmission Date: 20090719
  Serious: Yes (Hospitalization, Other)
  Sender: FDA-Public Use
  Company Number: DEP_00248_2009

PATIENT
  Age: 90 Year
  Sex: Female
  Weight: 40 kg

DRUGS (1)
  1. CIPROFLOXACIN [Suspect]
     Indication: PROTEUS INFECTION
     Dosage: 750 MG BID

REACTIONS (5)
  - CRYSTAL URINE PRESENT [None]
  - NEPHROPATHY [None]
  - OLIGURIA [None]
  - URINARY CASTS [None]
  - URINARY SEDIMENT PRESENT [None]
